FAERS Safety Report 14494662 (Version 1)
Quarter: 2018Q1

REPORT INFORMATION
  Report Type: Spontaneous
  Country: US (occurrence: US)
  Receive Date: 20180131
  Receipt Date: 20180131
  Transmission Date: 20180509
  Serious: Yes (Life-Threatening, Hospitalization, Other)
  Sender: FDA-Public Use
  Company Number: None

PATIENT
  Sex: Female
  Weight: 84.37 kg

DRUGS (5)
  1. CINGULAR [Concomitant]
  2. VALTREX [Concomitant]
     Active Substance: VALACYCLOVIR HYDROCHLORIDE
  3. LEXAPRO [Concomitant]
     Active Substance: ESCITALOPRAM OXALATE
  4. NEXPLANON [Suspect]
     Active Substance: ETONOGESTREL
     Dates: start: 20171010, end: 20171204
  5. ZYRTEC [Concomitant]
     Active Substance: CETIRIZINE HYDROCHLORIDE

REACTIONS (4)
  - Muscular weakness [None]
  - Speech disorder [None]
  - Hypoaesthesia [None]
  - Gait disturbance [None]

NARRATIVE: CASE EVENT DATE: 20171201
